FAERS Safety Report 25270443 (Version 2)
Quarter: 2025Q4

REPORT INFORMATION
  Report Type: Spontaneous
  Country: US (occurrence: US)
  Receive Date: 20250505
  Receipt Date: 20251203
  Transmission Date: 20260117
  Serious: No
  Sender: INCYTE
  Company Number: US-EVENT-002359

PATIENT

DRUGS (1)
  1. OPZELURA [Suspect]
     Active Substance: RUXOLITINIB PHOSPHATE
     Indication: Perioral dermatitis
     Dosage: UNK, EVERY DAY
     Route: 065

REACTIONS (7)
  - Perioral dermatitis [Unknown]
  - Product physical consistency issue [Unknown]
  - Skin disorder [Unknown]
  - Product availability issue [Unknown]
  - Drug effective for unapproved indication [Unknown]
  - Product dose omission issue [Unknown]
  - Off label use [Unknown]
